FAERS Safety Report 10385223 (Version 1)
Quarter: 2014Q3

REPORT INFORMATION
  Report Type: Spontaneous
  Country: DE (occurrence: None)
  Receive Date: 20140812
  Receipt Date: 20140812
  Transmission Date: 20150326
  Serious: Yes (Life-Threatening, Hospitalization)
  Sender: FDA-Public Use
  Company Number: AUR-APL-2014-08289

PATIENT
  Age: 87 Year
  Sex: Male
  Weight: 75 kg

DRUGS (5)
  1. RAMIPRIL. [Concomitant]
     Active Substance: RAMIPRIL
  2. BISOPROLOL [Concomitant]
     Active Substance: BISOPROLOL
  3. GLIMEPIRIDE. [Suspect]
     Active Substance: GLIMEPIRIDE
     Indication: TYPE 2 DIABETES MELLITUS
     Route: 048
  4. AMLODIPINE [Concomitant]
     Active Substance: AMLODIPINE BESYLATE
  5. TORASEMID [Concomitant]
     Active Substance: TORSEMIDE

REACTIONS (2)
  - Hepatic cirrhosis [None]
  - Blood glucose abnormal [None]

NARRATIVE: CASE EVENT DATE: 20140706
